FAERS Safety Report 19457194 (Version 1)
Quarter: 2021Q2

REPORT INFORMATION
  Report Type: Spontaneous
  Country: US (occurrence: US)
  Receive Date: 20210624
  Receipt Date: 20210624
  Transmission Date: 20210717
  Serious: Yes (Other)
  Sender: FDA-Public Use
  Company Number: US-STRIDES ARCOLAB LIMITED-2021SP006782

PATIENT
  Age: 69 Year
  Sex: Male

DRUGS (30)
  1. OLANZAPINE. [Suspect]
     Active Substance: OLANZAPINE
     Indication: BIPOLAR I DISORDER
  2. DIVALPROEX [Concomitant]
     Active Substance: DIVALPROEX SODIUM
     Dosage: 1000 MILLIGRAM AT BED TIME
     Route: 065
     Dates: start: 201803
  3. GABAPENTIN. [Suspect]
     Active Substance: GABAPENTIN
     Indication: RESTLESS LEGS SYNDROME
     Dosage: 800 MILLIGRAM IN THE MORNING
     Route: 065
     Dates: start: 201611, end: 201808
  4. LAMOTRIGINE. [Concomitant]
     Active Substance: LAMOTRIGINE
     Dosage: 100 MILLIGRAM IN THE MORNING, BID
     Route: 065
     Dates: start: 201611, end: 201802
  5. CODEINE [Concomitant]
     Active Substance: CODEINE
     Indication: RESTLESS LEGS SYNDROME
     Dosage: 30 MILLIGRAM AT BED TIME
     Route: 065
     Dates: start: 201703, end: 201802
  6. PRAMIPEXOLE DIHYDROCHLORIDE. [Suspect]
     Active Substance: PRAMIPEXOLE DIHYDROCHLORIDE
     Indication: RESTLESS LEGS SYNDROME
     Dosage: 0.375 MILLIGRAM DAILY
     Route: 065
     Dates: start: 201611, end: 201707
  7. OLANZAPINE. [Suspect]
     Active Substance: OLANZAPINE
     Indication: SLEEP DISORDER
     Dosage: UNK
     Route: 065
     Dates: start: 201612, end: 201701
  8. LAMOTRIGINE. [Concomitant]
     Active Substance: LAMOTRIGINE
     Indication: BIPOLAR I DISORDER
     Dosage: 300 MILLIGRAM PER DAY
     Route: 065
  9. DIVALPROEX [Concomitant]
     Active Substance: DIVALPROEX SODIUM
     Indication: MOOD SWINGS
     Dosage: 1500 MILLIGRAM AT BED TIME
     Route: 065
     Dates: start: 201701, end: 201802
  10. CODEINE [Concomitant]
     Active Substance: CODEINE
     Dosage: UNK, TAPPERED
     Route: 065
  11. ROPINIROLE. [Concomitant]
     Active Substance: ROPINIROLE
     Dosage: 6 MILLIGRAM, TITRATED UP, QD
     Route: 065
     Dates: start: 201707, end: 201805
  12. ROPINIROLE. [Concomitant]
     Active Substance: ROPINIROLE
     Dosage: 6 MILLIGRAM, TID
     Route: 065
     Dates: start: 201908, end: 201912
  13. ROPINIROLE. [Concomitant]
     Active Substance: ROPINIROLE
     Dosage: INCREASSED TO 8 MILLIGRAM
     Route: 065
     Dates: start: 202001
  14. PRAMIPEXOLE DIHYDROCHLORIDE. [Suspect]
     Active Substance: PRAMIPEXOLE DIHYDROCHLORIDE
     Indication: INSOMNIA
     Dosage: UNK, PROGRESSIVELY INCREASING THE DOSE
     Route: 065
  15. TEMAZEPAM. [Suspect]
     Active Substance: TEMAZEPAM
     Indication: INSOMNIA
     Dosage: 15 TO 30 MG AS NEEDED
     Route: 065
     Dates: start: 201611, end: 201611
  16. TEMAZEPAM. [Suspect]
     Active Substance: TEMAZEPAM
     Indication: RESTLESS LEGS SYNDROME
     Dosage: UNK, HIGHER THAN PRESCRIBED DOSES
     Route: 065
  17. FLUOXETINE [Concomitant]
     Active Substance: FLUOXETINE HYDROCHLORIDE
     Indication: RESTLESS LEGS SYNDROME
     Dosage: 40 MILLIGRAM DAILY
     Route: 065
     Dates: start: 201611
  18. QUETIAPINE. [Suspect]
     Active Substance: QUETIAPINE
     Indication: MOOD SWINGS
     Dosage: UNK
     Route: 065
     Dates: start: 201612, end: 201701
  19. FLUOXETINE [Concomitant]
     Active Substance: FLUOXETINE HYDROCHLORIDE
     Indication: INSOMNIA
  20. ROTIGOTINE [Concomitant]
     Active Substance: ROTIGOTINE
     Indication: PRODUCT USED FOR UNKNOWN INDICATION
     Dosage: UNK
     Route: 065
  21. GABAPENTIN. [Suspect]
     Active Substance: GABAPENTIN
     Indication: INSOMNIA
     Dosage: 3200 MILLIGRAM AT BEDTIME
     Route: 065
  22. GABAPENTIN. [Suspect]
     Active Substance: GABAPENTIN
     Dosage: REDUCED TO 1600 MILLIGRAM AT BED TIME
     Route: 065
     Dates: start: 201611, end: 201808
  23. TRAZODONE [Concomitant]
     Active Substance: TRAZODONE HYDROCHLORIDE
     Indication: RESTLESS LEGS SYNDROME
     Dosage: 200 MILLIGRAM AT BEDTIME
     Route: 065
     Dates: start: 201611, end: 201611
  24. ROPINIROLE. [Concomitant]
     Active Substance: ROPINIROLE
     Dosage: 4 MILLIGRAM, BID
     Route: 065
     Dates: start: 201806, end: 201903
  25. ROPINIROLE. [Concomitant]
     Active Substance: ROPINIROLE
     Dosage: 4 MILLIGRAM, TID
     Route: 065
     Dates: start: 201904, end: 201907
  26. LAMOTRIGINE. [Concomitant]
     Active Substance: LAMOTRIGINE
     Indication: RESTLESS LEGS SYNDROME
     Dosage: 150 MILLIGRAM AT BED TIME
     Route: 065
  27. ROPINIROLE. [Concomitant]
     Active Substance: ROPINIROLE
     Indication: RESTLESS LEGS SYNDROME
     Dosage: 0.5 MILLIGRAM BEFORE BED TIME
     Route: 065
  28. LAMOTRIGINE. [Concomitant]
     Active Substance: LAMOTRIGINE
     Indication: INSOMNIA
     Dosage: 200 MILLIGRAM, QD
     Route: 065
  29. LAMOTRIGINE. [Concomitant]
     Active Substance: LAMOTRIGINE
     Dosage: 200 MILLIGRAM AT BED TIME
     Route: 065
     Dates: start: 201802
  30. TRAZODONE [Concomitant]
     Active Substance: TRAZODONE HYDROCHLORIDE
     Indication: INSOMNIA
     Dosage: UNK,TAPERED
     Route: 065

REACTIONS (4)
  - Condition aggravated [Unknown]
  - Restless legs syndrome [Unknown]
  - Intentional product misuse [Unknown]
  - Off label use [Unknown]
